FAERS Safety Report 10543506 (Version 1)
Quarter: 2014Q4

REPORT INFORMATION
  Report Type: Spontaneous
  Country: US (occurrence: None)
  Receive Date: 20141010
  Receipt Date: 20141010
  Transmission Date: 20150529
  Serious: No
  Sender: FDA-Public Use
  Company Number: 163-POMAL-14071092

PATIENT
  Age: 64 Year
  Sex: Female
  Weight: 54.43 kg

DRUGS (10)
  1. MULTIVITAMINS [Concomitant]
     Active Substance: VITAMINS
  2. PROTONIX [Concomitant]
     Active Substance: PANTOPRAZOLE SODIUM
  3. PREVACID(LANSOPRAZOLE) [Concomitant]
  4. DEXAMTHESONE(DEXAMETHASONE) [Concomitant]
  5. VIT B (VITAMIN B) [Concomitant]
  6. CLARITIN-D(NARINE REPETABS) [Concomitant]
  7. LORTAB(VICODIN) [Concomitant]
  8. VALTREX(VALACICLOVIR HYDROCHLROIDE) [Concomitant]
  9. POMALYST [Suspect]
     Active Substance: POMALIDOMIDE
     Indication: PLASMA CELL MYELOMA
     Route: 048
     Dates: start: 201310
  10. CHONDROITIN SULFATE (BOVINE)\GLUCOSAMINE SULFATE [Concomitant]
     Active Substance: CHONDROITIN SULFATE (BOVINE)\GLUCOSAMINE SULFATE

REACTIONS (2)
  - Asthenia [None]
  - Psychomotor hyperactivity [None]
